FAERS Safety Report 9229013 (Version 3)
Quarter: 2013Q3

REPORT INFORMATION
  Report Type: Report from Study
  Country: IT (occurrence: IT)
  Receive Date: 20130412
  Receipt Date: 20130715
  Transmission Date: 20140515
  Serious: Yes (Hospitalization)
  Sender: FDA-Public Use
  Company Number: IT-BRISTOL-MYERS SQUIBB COMPANY-17235219

PATIENT
  Age: 75 Year
  Sex: Female

DRUGS (4)
  1. METFORMIN HCL [Suspect]
     Indication: TYPE 2 DIABETES MELLITUS
     Dosage: UNK-08-MAR-11:500MG,850MG?19JUN11-26MAR12:3000MG?26MAR12-2012-CONT:2000MG?UNK-08MAR2011:500MG
     Dates: start: 20120326
  2. HUMALOG [Suspect]
     Indication: TYPE 2 DIABETES MELLITUS
     Dosage: 1DF= 34IU/UNITS?HUMALOGMIX-28MAY12-18DEC12?18DEC12-CON-42IU/UNITS.
     Dates: start: 20120528
  3. PLACEBO [Suspect]
     Indication: TYPE 2 DIABETES MELLITUS
     Dosage: LAST DOSE:31MAR11
     Dates: start: 20110310, end: 20110331
  4. WARFARIN SODIUM [Suspect]

REACTIONS (1)
  - Bladder cancer [Not Recovered/Not Resolved]
